FAERS Safety Report 6359613-2 (Version None)
Quarter: 2009Q3

REPORT INFORMATION
  Report Type: 
  Country: None (occurrence: None)
  Receive Date: 20090917
  Receipt Date: 20090903
  Transmission Date: 20100115
  Serious: Yes (Hospitalization, Congenital Anomaly, Other)
  Sender: FDA-Public Use
  Company Number: GB-CELGENEUS-167-20484-09090443

PATIENT
  Sex: Female
  Weight: 1.92 kg

DRUGS (2)
  1. INNOHEP [Suspect]
     Route: 064
     Dates: start: 20050901, end: 20060110
  2. ASPIRIN [Concomitant]
     Route: 062

REACTIONS (3)
  - DRUG EXPOSURE DURING PREGNANCY [None]
  - INGUINAL HERNIA [None]
  - SMALL FOR DATES BABY [None]
